FAERS Safety Report 9220097 (Version 3)
Quarter: 2014Q1

REPORT INFORMATION
  Report Type: Report from Study
  Country: BR (occurrence: BR)
  Receive Date: 20130409
  Receipt Date: 20140129
  Transmission Date: 20141002
  Serious: Yes (Hospitalization, Other)
  Sender: FDA-Public Use
  Company Number: BR-ROCHE-1211785

PATIENT
  Sex: Female
  Weight: 94 kg

DRUGS (6)
  1. MABTHERA [Suspect]
     Indication: RHEUMATOID ARTHRITIS
     Route: 065
  2. DIPYRONE [Concomitant]
  3. ATENOLOL [Concomitant]
  4. LEFLUNOMIDE [Concomitant]
  5. METHOTREXATE [Concomitant]
  6. FOLIC ACID [Concomitant]

REACTIONS (5)
  - Pulmonary embolism [Recovered/Resolved]
  - Ankle fracture [Unknown]
  - Pain in extremity [Recovered/Resolved]
  - Influenza [Recovered/Resolved]
  - Urinary tract infection [Recovered/Resolved]
